FAERS Safety Report 6631636-5 (Version None)
Quarter: 2010Q1

REPORT INFORMATION
  Report Type: 
  Country: None (occurrence: None)
  Receive Date: 20100312
  Receipt Date: 20100310
  Transmission Date: 20100710
  Serious: Yes (Other)
  Sender: FDA-Public Use
  Company Number: FR-BRISTOL-MYERS SQUIBB COMPANY-15011083

PATIENT
  Age: 75 Year
  Sex: Male

DRUGS (4)
  1. QUESTRAN [Suspect]
     Dosage: 1 DF=3 SACHETS INTIALLY,THEN 2 SACHETS FOR MORE THAN 1 YEAR
  2. ALLOPURINOL [Concomitant]
  3. RAMIPRIL [Concomitant]
  4. LERCAN [Concomitant]

REACTIONS (1)
  - BLOOD CREATINE PHOSPHOKINASE INCREASED [None]
